FAERS Safety Report 15016055 (Version 2)
Quarter: 2018Q3

REPORT INFORMATION
  Report Type: Spontaneous
  Country: IT (occurrence: IT)
  Receive Date: 20180615
  Receipt Date: 20180921
  Transmission Date: 20181010
  Serious: Yes (Other)
  Sender: FDA-Public Use
  Company Number: IT-NOVOPROD-604605

PATIENT
  Age: 45 Year
  Sex: Male

DRUGS (1)
  1. HUMAN INSULIN [Suspect]
     Active Substance: INSULIN HUMAN
     Indication: DRUG ABUSE
     Dosage: UNK
     Route: 058
     Dates: start: 20180530, end: 20180530

REACTIONS (3)
  - Sopor [Recovered/Resolved]
  - Intentional self-injury [Unknown]
  - Hyperinsulinaemic hypoglycaemia [Recovered/Resolved]

NARRATIVE: CASE EVENT DATE: 20180530
